FAERS Safety Report 7928668-3 (Version None)
Quarter: 2011Q4

REPORT INFORMATION
  Report Type: 
  Country: None (occurrence: None)
  Receive Date: 20111118
  Receipt Date: 20111103
  Transmission Date: 20120403
  Serious: No
  Sender: FDA-Public Use
  Company Number: US-MYLANLABS-2011S1018709

PATIENT
  Age: 53 Year
  Sex: Female
  Weight: 74.84 kg

DRUGS (4)
  1. VALACYCLOVIR HYDROCHLORIDE [Suspect]
     Route: 048
     Dates: start: 20110831, end: 20110901
  2. VALACYCLOVIR HYDROCHLORIDE [Suspect]
     Route: 048
     Dates: start: 20110901, end: 20110901
  3. VALACYCLOVIR HYDROCHLORIDE [Suspect]
     Route: 048
     Dates: start: 20110901, end: 20110901
  4. VALACYCLOVIR HYDROCHLORIDE [Suspect]
     Indication: HERPES ZOSTER
     Route: 048
     Dates: start: 20110831, end: 20110901

REACTIONS (5)
  - CONTUSION [None]
  - ABDOMINAL DISCOMFORT [None]
  - CHEST DISCOMFORT [None]
  - PERIPHERAL COLDNESS [None]
  - MUSCLE SPASMS [None]
